FAERS Safety Report 6618344 (Version 3)
Quarter: 2012Q4

REPORT INFORMATION
  Report Type: 
  Country: US (occurrence: US)
  Receive Date: 20080418
  Receipt Date: 20121108
  Transmission Date: 20130627
  Serious: No
  Sender: FDA-Public Use
  Company Number: US-ASTRAZENECA-2007UW02886

PATIENT
  Age: 75 Year
  Sex: Female
  Weight: 83.9 kg

DRUGS (18)
  1. NEXIUM [Suspect]
     Indication: GASTROOESOPHAGEAL REFLUX DISEASE
     Route: 048
     Dates: start: 1992
  2. NEXIUM [Suspect]
     Indication: GASTROOESOPHAGEAL REFLUX DISEASE
     Route: 048
     Dates: start: 20070201
  3. NEXIUM [Suspect]
     Indication: GASTROOESOPHAGEAL REFLUX DISEASE
     Route: 048
  4. ZESTRIL [Suspect]
     Indication: HYPERTENSION
     Route: 048
     Dates: start: 200508
  5. ZESTRIL [Suspect]
     Indication: HYPERTENSION
     Route: 048
     Dates: start: 200508
  6. ZESTRIL [Suspect]
     Indication: HYPERTENSION
     Route: 048
  7. ZESTRIL [Suspect]
     Indication: HYPERTENSION
     Route: 048
  8. ZESTRIL [Suspect]
     Indication: HYPERTENSION
     Route: 048
     Dates: start: 2006
  9. ZESTRIL [Suspect]
     Indication: HYPERTENSION
     Route: 048
     Dates: start: 2006
  10. ZESTRIL [Suspect]
     Indication: HYPERTENSION
     Route: 048
     Dates: start: 200708
  11. ZESTRIL [Suspect]
     Indication: HYPERTENSION
     Route: 048
     Dates: start: 200708
  12. TOPROL XL [Suspect]
     Indication: HYPERTENSION
     Route: 048
     Dates: start: 20070201
  13. TOPROL XL [Suspect]
     Indication: HYPERTENSION
     Route: 048
  14. PRILOSEC OTC [Suspect]
  15. PROCARDIA [Suspect]
  16. HYDROCHLOROTHIAZIDE [Suspect]
     Route: 065
  17. CLONIDINE [Concomitant]
  18. WATER PILL [Concomitant]

REACTIONS (23)
  - Dysphagia [Unknown]
  - Blood pressure systolic increased [Unknown]
  - Flushing [Unknown]
  - Cataract [Unknown]
  - Cardiac flutter [Recovered/Resolved]
  - Feeling abnormal [Unknown]
  - Cough [Unknown]
  - Dry throat [Unknown]
  - Fatigue [Unknown]
  - Fatigue [Unknown]
  - Hypertension [Not Recovered/Not Resolved]
  - Joint swelling [Unknown]
  - Emotional distress [Unknown]
  - Gastrooesophageal reflux disease [Unknown]
  - Intentional drug misuse [Unknown]
  - Oropharyngeal pain [Unknown]
  - Dizziness [Unknown]
  - Depression [Unknown]
  - Vomiting [Unknown]
  - Upper-airway cough syndrome [Unknown]
  - Drug ineffective [Unknown]
  - Circumstance or information capable of leading to medication error [Unknown]
  - Wrong drug administered [Unknown]
